FAERS Safety Report 9165342 (Version 1)
Quarter: 2013Q1

REPORT INFORMATION
  Report Type: Other
  Country: IQ (occurrence: IQ)
  Receive Date: 20130315
  Receipt Date: 20130315
  Transmission Date: 20140127
  Serious: Yes (Death)
  Sender: FDA-Public Use
  Company Number: IQ-BRISTOL-MYERS SQUIBB COMPANY-17443789

PATIENT
  Age: 40 Year
  Sex: Female

DRUGS (1)
  1. AMPICILLIN [Suspect]
     Dosage: 500 MG

REACTIONS (1)
  - Stevens-Johnson syndrome [Fatal]
